FAERS Safety Report 4291822-9 (Version None)
Quarter: 2004Q1

REPORT INFORMATION
  Report Type: 
  Country: None (occurrence: None)
  Receive Date: 20040210
  Receipt Date: 20040210
  Transmission Date: 20041129
  Serious: Yes (Hospitalization)
  Sender: FDA-Public Use
  Company Number: None

PATIENT
  Age: 55 Year
  Sex: Female
  Weight: 75 kg

DRUGS (2)
  1. TOPROL-XL [Suspect]
     Indication: CORONARY ARTERY DISEASE
     Dosage: 50 MG DAILY ORAL
     Route: 048
     Dates: start: 20030901, end: 20031117
  2. TOPROL-XL [Suspect]
     Indication: HYPERTENSION
     Dosage: 50 MG DAILY ORAL
     Route: 048
     Dates: start: 20030901, end: 20031117

REACTIONS (3)
  - BRADYCARDIA [None]
  - HYPOTENSION [None]
  - SYNCOPE [None]
